FAERS Safety Report 5503378-0 (Version None)
Quarter: 2007Q4

REPORT INFORMATION
  Report Type: 
  Country: None (occurrence: None)
  Receive Date: 20071031
  Receipt Date: 20071023
  Transmission Date: 20080405
  Serious: Yes (Hospitalization, Other)
  Sender: FDA-Public Use
  Company Number: US-BOEHRINGER INGELHEIM PHARMACEUTICALS, INC.-2007-BP-23533BP

PATIENT
  Sex: Female
  Weight: 112 kg

DRUGS (3)
  1. MIRAPEX [Suspect]
     Indication: RESTLESS LEGS SYNDROME
     Route: 048
     Dates: start: 19980101, end: 20071001
  2. LYRICA [Suspect]
     Indication: PAIN IN EXTREMITY
     Route: 048
     Dates: start: 20071001
  3. UNSPECIFIED MEDICATIONS [Concomitant]

REACTIONS (11)
  - CYST [None]
  - DIZZINESS [None]
  - DRY MOUTH [None]
  - INCORRECT DOSE ADMINISTERED [None]
  - MIDDLE INSOMNIA [None]
  - NERVE COMPRESSION [None]
  - OEDEMA PERIPHERAL [None]
  - POLYMEDICATION [None]
  - SOMNOLENCE [None]
  - SURGERY [None]
  - VISION BLURRED [None]
